FAERS Safety Report 9861756 (Version 3)
Quarter: 2014Q1

REPORT INFORMATION
  Report Type: Spontaneous
  Country: US (occurrence: US)
  Receive Date: 20140203
  Receipt Date: 20140313
  Transmission Date: 20141002
  Serious: No
  Sender: FDA-Public Use
  Company Number: US-009507513-1401USA013888

PATIENT
  Sex: Male

DRUGS (1)
  1. TIMOLOL MALEATE [Suspect]
     Indication: GLAUCOMA
     Dosage: 1 DROP PER EYE, QD
     Route: 047

REACTIONS (4)
  - Intentional drug misuse [Unknown]
  - Product container issue [Unknown]
  - Inappropriate schedule of drug administration [Unknown]
  - No adverse event [Unknown]
